FAERS Safety Report 6206252-X (Version None)
Quarter: 2009Q2

REPORT INFORMATION
  Report Type: 
  Country: None (occurrence: None)
  Receive Date: 20090528
  Receipt Date: 20090520
  Transmission Date: 20091009
  Serious: Yes (Other)
  Sender: FDA-Public Use
  Company Number: CA-ASTRAZENECA-2009UW13025

PATIENT
  Age: 60 Year
  Sex: Female

DRUGS (4)
  1. ATACAND [Suspect]
     Route: 048
     Dates: start: 20040101
  2. ATACAND [Suspect]
     Route: 048
  3. METOPROLOL SUCCINATE [Concomitant]
  4. BLOOD THINNERS [Concomitant]

REACTIONS (8)
  - ARRHYTHMIA [None]
  - ARTHRALGIA [None]
  - CHROMATURIA [None]
  - HEADACHE [None]
  - HEPATITIS C [None]
  - MUSCLE SPASMS [None]
  - NAIL DISORDER [None]
  - RETINAL DETACHMENT [None]
